FAERS Safety Report 7972964-0 (Version None)
Quarter: 2011Q4

REPORT INFORMATION
  Report Type: 
  Country: None (occurrence: None)
  Receive Date: 20111213
  Receipt Date: 20111209
  Transmission Date: 20120403
  Serious: Yes (Other)
  Sender: FDA-Public Use
  Company Number: JP-PFIZER INC-2011297919

PATIENT
  Age: 52 Year
  Sex: Male
  Weight: 71.3 kg

DRUGS (11)
  1. ZETIA [Concomitant]
     Indication: HYPERLIPIDAEMIA
     Dosage: UNK
     Route: 048
  2. METHYCOBAL [Concomitant]
     Indication: NEUROPATHY PERIPHERAL
     Dosage: UNK
     Route: 048
  3. LYRICA [Suspect]
     Dosage: 75 MG, 2X/DAY
     Route: 048
     Dates: start: 20111029, end: 20111202
  4. LYRICA [Suspect]
     Dosage: 75 MG, 1X/DAY
     Route: 048
     Dates: start: 20111206
  5. MYONAL [Concomitant]
     Indication: CERVICOBRACHIAL SYNDROME
     Dosage: UNK
     Route: 048
  6. LYRICA [Suspect]
     Indication: TRIGEMINAL NEURALGIA
     Dosage: 75 MG, 1X/DAY
     Route: 048
     Dates: start: 20110903, end: 20111028
  7. NEUROTROPIN [Concomitant]
     Indication: CERVICOBRACHIAL SYNDROME
     Dosage: UNK
     Route: 048
  8. JUVELA NICOTINATE [Concomitant]
     Indication: HYPERLIPIDAEMIA
     Dosage: UNK
     Route: 048
  9. TEGRETOL [Concomitant]
     Indication: TRIGEMINAL NEURALGIA
     Dosage: UNK
     Route: 048
  10. LYRICA [Suspect]
     Dosage: 50 MG, 2X/DAY
     Route: 048
     Dates: start: 20111203, end: 20111205
  11. LIVALO [Concomitant]
     Indication: HYPERLIPIDAEMIA
     Dosage: UNK
     Route: 048

REACTIONS (4)
  - FALL [None]
  - HEAD INJURY [None]
  - LIGAMENT SPRAIN [None]
  - SYNCOPE [None]
